FAERS Safety Report 4939944-0 (Version None)
Quarter: 2006Q1

REPORT INFORMATION
  Report Type: 
  Country: None (occurrence: None)
  Receive Date: 20060310
  Receipt Date: 20060301
  Transmission Date: 20060701
  Serious: Yes (Death, Hospitalization)
  Sender: FDA-Public Use
  Company Number: FR-GLAXOSMITHKLINE-B0414725A

PATIENT
  Age: 81 Year
  Sex: Female
  Weight: 70 kg

DRUGS (5)
  1. ARIXTRA [Suspect]
     Indication: DEEP VEIN THROMBOSIS
     Dosage: 7.5MG PER DAY
     Route: 058
     Dates: start: 20060201, end: 20060201
  2. VENTOLIN [Concomitant]
     Indication: ASTHMA
     Route: 065
  3. KARDEGIC [Concomitant]
     Route: 065
  4. CALCIUM CHANNEL BLOCKER(UNSPECIFIED) [Concomitant]
     Route: 065
  5. THEOPHYLLINE [Concomitant]
     Indication: ASTHMA
     Route: 065

REACTIONS (8)
  - ABDOMINAL PAIN [None]
  - ANAEMIA [None]
  - ANURIA [None]
  - CIRCULATORY COLLAPSE [None]
  - HAEMORRHAGE [None]
  - MUSCLE HAEMORRHAGE [None]
  - RENAL TUBULAR NECROSIS [None]
  - SHOCK [None]
